FAERS Safety Report 6140470-4 (Version None)
Quarter: 2009Q1

REPORT INFORMATION
  Report Type: 
  Country: None (occurrence: None)
  Receive Date: 20090331
  Receipt Date: 20090319
  Transmission Date: 20090719
  Serious: Yes (Hospitalization)
  Sender: FDA-Public Use
  Company Number: 2009002064

PATIENT
  Age: 58 Year
  Sex: Female
  Weight: 58.9676 kg

DRUGS (16)
  1. ACTIQ [Suspect]
     Indication: FIBROMYALGIA
     Dosage: 2400 MCG (600 MCG, 4 IN 1 D), BU
     Route: 002
     Dates: start: 20060101
  2. FENTANYL-100 [Concomitant]
  3. ZOFRAN [Concomitant]
  4. DILANTIN (PHYENYTOIN) [Concomitant]
  5. SER0QUEL (QUETIAPINE) [Concomitant]
  6. CLONAZEPAM [Concomitant]
  7. ZONEGRAN [Concomitant]
  8. TIZANIDINE HCL [Concomitant]
  9. LISINOPRIL [Concomitant]
  10. SYNTHROID [Concomitant]
  11. PREVACID [Concomitant]
  12. TEMAZEPAM [Concomitant]
  13. LEXAPRO [Concomitant]
  14. MIRALAX [Concomitant]
  15. BENADRYL (DIPHENHYDRAMINE HYDROHLORIDE) [Concomitant]
  16. ASPIRIN [Concomitant]

REACTIONS (3)
  - DRUG INEFFECTIVE [None]
  - INTESTINAL OBSTRUCTION [None]
  - PRODUCT QUALITY ISSUE [None]
